FAERS Safety Report 4367762-3 (Version None)
Quarter: 2004Q2

REPORT INFORMATION
  Report Type: 
  Country: None (occurrence: None)
  Receive Date: 20040601
  Receipt Date: 20040520
  Transmission Date: 20050107
  Serious: Yes (Other)
  Sender: FDA-Public Use
  Company Number: PHBS2004BR06768

PATIENT
  Age: 48 Year
  Sex: Female
  Weight: 77 kg

DRUGS (1)
  1. ZELMAC [Suspect]
     Indication: IRRITABLE BOWEL SYNDROME
     Dosage: 6 MG, BID
     Route: 048
     Dates: start: 20040501

REACTIONS (6)
  - DIARRHOEA [None]
  - DIZZINESS [None]
  - EAR PAIN [None]
  - HEADACHE [None]
  - PARAESTHESIA [None]
  - SENSATION OF PRESSURE IN EAR [None]
